FAERS Safety Report 20631395 (Version 1)
Quarter: 2022Q1

REPORT INFORMATION
  Report Type: Spontaneous
  Country: US (occurrence: US)
  Receive Date: 20220324
  Receipt Date: 20220324
  Transmission Date: 20220423
  Serious: No
  Sender: FDA-Public Use
  Company Number: US-IMPEL NEUROPHARMA-2022-SPO-TR-0011

PATIENT

DRUGS (2)
  1. TRUDHESA [Suspect]
     Active Substance: DIHYDROERGOTAMINE MESYLATE
     Indication: Migraine
     Dosage: UNK UNK, PRN
     Route: 045
  2. TRUDHESA [Suspect]
     Active Substance: DIHYDROERGOTAMINE MESYLATE
     Dosage: UNK UNK, PRN
     Route: 045
     Dates: start: 20220216

REACTIONS (4)
  - Angina pectoris [Recovered/Resolved]
  - Nasal congestion [Recovered/Resolved]
  - Ear pain [Recovered/Resolved]
  - Drug ineffective [Unknown]

NARRATIVE: CASE EVENT DATE: 20220216
